FAERS Safety Report 5800733-6 (Version None)
Quarter: 2008Q3

REPORT INFORMATION
  Report Type: 
  Country: None (occurrence: None)
  Receive Date: 20080701
  Receipt Date: 20080616
  Transmission Date: 20090109
  Serious: Yes (Hospitalization)
  Sender: FDA-Public Use
  Company Number: GXKR2008NL05860

PATIENT

DRUGS (3)
  1. PROPRANOLOL [Suspect]
  2. CITALOPRAM HYDROBROMIDE [Suspect]
     Dosage: 200 MG
  3. BENZODIAZEPINES (NO INGREDIENTS/SUBSTANCES) [Suspect]

REACTIONS (2)
  - DRUG INTERACTION [None]
  - DRUG TOXICITY [None]
